FAERS Safety Report 14252319 (Version 4)
Quarter: 2018Q1

REPORT INFORMATION
  Report Type: Spontaneous
  Country: JP (occurrence: JP)
  Receive Date: 20171205
  Receipt Date: 20180316
  Transmission Date: 20180508
  Serious: Yes (Other)
  Sender: FDA-Public Use
  Company Number: JP-VIFOR (INTERNATIONAL) INC.-VIT-2017-12986

PATIENT
  Age: 47 Year
  Sex: Male

DRUGS (8)
  1. VELPHORO [Suspect]
     Active Substance: FERRIC OXYHYDROXIDE
     Indication: HYPERPHOSPHATAEMIA
     Route: 048
     Dates: start: 20170922, end: 20171118
  2. POLARAMINE [Concomitant]
     Active Substance: DEXCHLORPHENIRAMINE MALEATE
     Route: 065
  3. BUFFERIN [Concomitant]
     Active Substance: ASPIRIN
  4. REGPARA [Concomitant]
     Active Substance: CINACALCET HYDROCHLORIDE
  5. FOSRENOL [Concomitant]
     Active Substance: LANTHANUM CARBONATE
  6. OXAROL [Concomitant]
     Active Substance: MAXACALCITOL
     Route: 065
  7. MYSLEE [Concomitant]
     Active Substance: ZOLPIDEM TARTRATE
  8. CRESTOR [Concomitant]
     Active Substance: ROSUVASTATIN CALCIUM

REACTIONS (1)
  - Haemoglobin increased [Unknown]

NARRATIVE: CASE EVENT DATE: 20171106
